FAERS Safety Report 19803555 (Version 1)
Quarter: 2021Q3

REPORT INFORMATION
  Report Type: Spontaneous
  Country: RU (occurrence: RU)
  Receive Date: 20210908
  Receipt Date: 20210908
  Transmission Date: 20211014
  Serious: Yes (Hospitalization)
  Sender: FDA-Public Use
  Company Number: RU-STRIDES ARCOLAB LIMITED-2021SP027349

PATIENT
  Sex: Male

DRUGS (8)
  1. TACROLIMUS. [Suspect]
     Active Substance: TACROLIMUS
     Dosage: UNK, ADJUSTED
     Route: 065
  2. METHIPRED [Concomitant]
     Dosage: UNK
     Route: 065
  3. MYCOPHENOLIC ACID. [Concomitant]
     Active Substance: MYCOPHENOLIC ACID
     Indication: RENAL TRANSPLANT
     Dosage: 1440 MILLIGRAM PER DAY
     Route: 065
     Dates: start: 2008
  4. METHIPRED [Concomitant]
     Indication: RENAL TRANSPLANT
     Dosage: 1000 MILLIGRAM PER DAY
     Route: 065
     Dates: start: 2008
  5. PREDNISOLONE. [Concomitant]
     Active Substance: PREDNISOLONE
     Indication: RENAL TRANSPLANT
     Dosage: 30 MILLIGRAM PER DAY
     Route: 065
     Dates: start: 2008
  6. TACROLIMUS. [Suspect]
     Active Substance: TACROLIMUS
     Indication: RENAL TRANSPLANT
     Dosage: 0.2 MG/KG/DAY
     Route: 065
     Dates: start: 2008
  7. PREDNISOLONE. [Concomitant]
     Active Substance: PREDNISOLONE
     Dosage: UNK, RE?INITIATED
     Route: 065
     Dates: start: 201510
  8. BASILIXIMAB [Concomitant]
     Active Substance: BASILIXIMAB
     Indication: RENAL TRANSPLANT
     Dosage: 40 MILLIGRAM
     Route: 065
     Dates: start: 2008

REACTIONS (8)
  - Wernicke^s encephalopathy [Recovered/Resolved]
  - Neutropenia [Recovered/Resolved]
  - Renal tubular necrosis [Recovered/Resolved]
  - Nephrosclerosis [Recovered/Resolved]
  - Pancreatitis acute [Recovered/Resolved]
  - Dysbiosis [Recovered/Resolved]
  - Nephropathy toxic [Recovered/Resolved]
  - Toxicity to various agents [Recovered/Resolved]

NARRATIVE: CASE EVENT DATE: 201707
